FAERS Safety Report 22120309 (Version 1)
Quarter: 2023Q1

REPORT INFORMATION
  Report Type: Spontaneous
  Country: US (occurrence: US)
  Receive Date: 20230321
  Receipt Date: 20230321
  Transmission Date: 20230417
  Serious: Yes (Death, Hospitalization)
  Sender: FDA-Public Use
  Company Number: US-MYLANLABS-2023M1030161

PATIENT
  Age: 47 Year
  Sex: Female

DRUGS (11)
  1. PACLITAXEL [Suspect]
     Active Substance: PACLITAXEL
     Indication: Triple negative breast cancer
     Dosage: UNK
     Route: 065
  2. HYDROCORTISONE [Suspect]
     Active Substance: HYDROCORTISONE
     Indication: Acute myocardial infarction
     Dosage: 100 MILLIGRAM
     Route: 065
  3. HYDROCORTISONE [Suspect]
     Active Substance: HYDROCORTISONE
     Indication: Kounis syndrome
  4. DIPHENHYDRAMINE [Suspect]
     Active Substance: DIPHENHYDRAMINE
     Indication: Acute myocardial infarction
     Dosage: 50 MILLIGRAM
     Route: 042
  5. DIPHENHYDRAMINE [Suspect]
     Active Substance: DIPHENHYDRAMINE
     Indication: Kounis syndrome
  6. EPINEPHRINE [Suspect]
     Active Substance: EPINEPHRINE
     Indication: Acute myocardial infarction
     Dosage: UNK
     Route: 065
  7. EPINEPHRINE [Suspect]
     Active Substance: EPINEPHRINE
     Indication: Kounis syndrome
  8. NITROGLYCERIN [Suspect]
     Active Substance: NITROGLYCERIN
     Indication: Acute myocardial infarction
     Dosage: UNK
     Route: 022
  9. NITROGLYCERIN [Suspect]
     Active Substance: NITROGLYCERIN
     Indication: Kounis syndrome
  10. ZOTAROLIMUS [Suspect]
     Active Substance: ZOTAROLIMUS
     Indication: Acute myocardial infarction
     Dosage: UNK, 2 DRUG-ELUTING STENTS
     Route: 065
  11. ZOTAROLIMUS [Suspect]
     Active Substance: ZOTAROLIMUS
     Indication: Kounis syndrome

REACTIONS (5)
  - Kounis syndrome [Fatal]
  - Acute myocardial infarction [Fatal]
  - Ventricular fibrillation [Fatal]
  - Pulseless electrical activity [Fatal]
  - Drug ineffective [Fatal]
